FAERS Safety Report 19169869 (Version 1)
Quarter: 2021Q2

REPORT INFORMATION
  Report Type: Spontaneous
  Country: JP (occurrence: JP)
  Receive Date: 20210422
  Receipt Date: 20210422
  Transmission Date: 20210717
  Serious: Yes (Hospitalization, Other)
  Sender: FDA-Public Use
  Company Number: JP-LUPIN PHARMACEUTICALS INC.-2021-05090

PATIENT
  Age: 68 Year
  Sex: Male

DRUGS (9)
  1. AZITHROMYCIN ANHYDROUS. [Suspect]
     Active Substance: AZITHROMYCIN ANHYDROUS
     Indication: COVID-19
     Dosage: UNK
     Route: 065
  2. LOPINAVIR/RITONAVIR [Suspect]
     Active Substance: LOPINAVIR\RITONAVIR
     Indication: COVID-19
     Dosage: UNK
     Route: 065
  3. METHYLPREDNISOLONE. [Suspect]
     Active Substance: METHYLPREDNISOLONE
     Indication: COVID-19
     Dosage: 1000 MILLIGRAM PULSE THERAPY
     Route: 065
  4. SIVELESTAT [Suspect]
     Active Substance: SIVELESTAT
     Indication: COVID-19
     Dosage: UNK
     Route: 042
  5. HYDROCORTISONE. [Suspect]
     Active Substance: HYDROCORTISONE
     Indication: COVID-19
     Dosage: 250 MILLIGRAM, QD (LOW?DOSE STEROID)
     Route: 065
  6. CICLESONIDE [Suspect]
     Active Substance: CICLESONIDE
     Indication: COVID-19
     Dosage: UNK
     Route: 065
  7. IMMUNOGLOBULIN [IMMUNOGLOBULINS NOS] [Suspect]
     Active Substance: IMMUNE GLOBULIN NOS
     Indication: COVID-19
     Dosage: UNK
     Route: 042
  8. HYDROXYCHLOROQUINE [Suspect]
     Active Substance: HYDROXYCHLOROQUINE
     Indication: COVID-19
     Dosage: UNK
     Route: 065
  9. AMPICILLIN/SULBACTAM [Suspect]
     Active Substance: AMPICILLIN SODIUM\SULBACTAM SODIUM
     Indication: COVID-19
     Dosage: UNK
     Route: 065

REACTIONS (2)
  - Immobilisation syndrome [Unknown]
  - Off label use [Unknown]
